FAERS Safety Report 6722213-6 (Version None)
Quarter: 2010Q2

REPORT INFORMATION
  Report Type: 
  Country: None (occurrence: None)
  Receive Date: 20100512
  Receipt Date: 20100428
  Transmission Date: 20101027
  Serious: Yes (Hospitalization)
  Sender: FDA-Public Use
  Company Number: HU-ELI_LILLY_AND_COMPANY-HU201004008481

PATIENT
  Age: 40 Year
  Sex: Male

DRUGS (7)
  1. ZYPADHERA [Suspect]
     Dosage: 210 MG, UNKNOWN
     Route: 030
     Dates: start: 20100310, end: 20100310
  2. ZYPADHERA [Suspect]
     Dosage: 300 MG, UNKNOWN
     Route: 030
     Dates: start: 20100331, end: 20100331
  3. ZYPADHERA [Suspect]
     Dosage: 405 MG, UNKNOWN
     Route: 030
     Dates: start: 20100428, end: 20100428
  4. ZYPREXA [Suspect]
     Dosage: 15 MG, DAILY (1/D)
     Route: 065
  5. ZYPREXA [Suspect]
     Dosage: 7.5 MG, DAILY (1/D)
     Route: 065
  6. CYMBALTA [Concomitant]
     Dosage: 90 MG, DAILY (1/D)
     Route: 065
  7. RIVOTRIL [Concomitant]
     Dosage: 1 MG, 3/D
     Route: 065

REACTIONS (5)
  - ANXIETY [None]
  - ASTHENIA [None]
  - DIZZINESS [None]
  - MUSCLE CONTRACTIONS INVOLUNTARY [None]
  - SOMNOLENCE [None]
